FAERS Safety Report 8074002-0 (Version None)
Quarter: 2012Q1

REPORT INFORMATION
  Report Type: 
  Country: None (occurrence: None)
  Receive Date: 20120126
  Receipt Date: 20120117
  Transmission Date: 20120608
  Serious: Yes (Other)
  Sender: FDA-Public Use
  Company Number: US-ELI_LILLY_AND_COMPANY-US201201005474

PATIENT
  Age: 57 Year
  Sex: Female

DRUGS (4)
  1. EFFIENT [Suspect]
     Dosage: 30 MG, SINGLE, ADDITIONAL LOADING DOSE
     Dates: start: 20120117
  2. ANGIOMAX [Concomitant]
  3. EFFIENT [Suspect]
     Indication: STENT PLACEMENT
     Dosage: 60 MG, SINGLE, LOADING DOSE
     Dates: start: 20120117
  4. ASPIRIN [Concomitant]

REACTIONS (1)
  - THROMBOSIS IN DEVICE [None]
